FAERS Safety Report 17332957 (Version 1)
Quarter: 2020Q1

REPORT INFORMATION
  Report Type: Spontaneous
  Country: US (occurrence: US)
  Receive Date: 20200128
  Receipt Date: 20200128
  Transmission Date: 20200409
  Serious: No
  Sender: FDA-Public Use
  Company Number: US-CIPLA LTD.-2019US07644

PATIENT

DRUGS (3)
  1. PREGABALIN. [Suspect]
     Active Substance: PREGABALIN
     Indication: NEURALGIA
     Dosage: 600 MILLIGRAM, (3 CAPSULES OF 200 MG), PER DAY
     Route: 048
     Dates: start: 20191014, end: 20191112
  2. CYMBALTA [Concomitant]
     Active Substance: DULOXETINE HYDROCHLORIDE
     Indication: PRODUCT USED FOR UNKNOWN INDICATION
     Dosage: UNK
     Route: 065
  3. GABAPENTIN. [Suspect]
     Active Substance: GABAPENTIN
     Indication: NEURALGIA
     Dosage: UNK, (UP TO 1200 MG/DAY)
     Route: 065

REACTIONS (7)
  - Off label use [Unknown]
  - Product substitution issue [Unknown]
  - Drug ineffective for unapproved indication [Unknown]
  - Headache [Recovering/Resolving]
  - Neuralgia [Recovering/Resolving]
  - Gait disturbance [Recovering/Resolving]
  - Feeling abnormal [Unknown]

NARRATIVE: CASE EVENT DATE: 20191014
